FAERS Safety Report 25269304 (Version 1)
Quarter: 2025Q2

REPORT INFORMATION
  Report Type: Spontaneous
  Country: US (occurrence: None)
  Receive Date: 20250503
  Receipt Date: 20250503
  Transmission Date: 20250717
  Serious: Yes (Death, Hospitalization)
  Sender: FDA-CTU
  Company Number: None

PATIENT
  Age: 60 Year
  Sex: Female
  Weight: 55.3 kg

DRUGS (2)
  1. LENVATINIB [Suspect]
     Active Substance: LENVATINIB
  2. EVEROLIMUS [Suspect]
     Active Substance: EVEROLIMUS

REACTIONS (16)
  - Shock [None]
  - Gastrointestinal haemorrhage [None]
  - Small intestine carcinoma [None]
  - Thrombosis [None]
  - Systemic candida [None]
  - Enterococcal bacteraemia [None]
  - Hypotension [None]
  - Pupil fixed [None]
  - Brain death [None]
  - Cerebrovascular accident [None]
  - Brain injury [None]
  - Brain oedema [None]
  - Pneumocephalus [None]
  - Cerebral haemorrhage [None]
  - Depressed level of consciousness [None]
  - Small intestinal haemorrhage [None]

NARRATIVE: CASE EVENT DATE: 20250410
